FAERS Safety Report 14003431 (Version 1)
Quarter: 2017Q3

REPORT INFORMATION
  Report Type: Other
  Country: GB (occurrence: IN)
  Receive Date: 20170922
  Receipt Date: 20170922
  Transmission Date: 20171128
  Serious: Yes (Other)
  Sender: FDA-Public Use
  Company Number: IN-INTERNATIONAL MEDICATION SYSTEMS, LIMITED-2027453

PATIENT
  Age: 64 Year
  Sex: Male

DRUGS (1)
  1. LIDOCAINE 2% AND EPINEPHRINE 1:200,000 INJECTION [Suspect]
     Active Substance: EPINEPHRINE\LIDOCAINE
     Indication: ANAESTHESIA

REACTIONS (1)
  - Purtscher retinopathy [Recovered/Resolved]
